FAERS Safety Report 4935066-3 (Version None)
Quarter: 2006Q1

REPORT INFORMATION
  Report Type: 
  Country: None (occurrence: None)
  Receive Date: 20060302
  Receipt Date: 20060216
  Transmission Date: 20060701
  Serious: Yes (Other)
  Sender: FDA-Public Use
  Company Number: US200602003493

PATIENT
  Age: 73 Year
  Sex: Male

DRUGS (4)
  1. HUMULIN L [Suspect]
     Indication: DIABETES MELLITUS
     Dosage: 30 UG, EACH MORNING
  2. HUMULIN R [Suspect]
     Indication: DIABETES MELLITUS
     Dates: end: 19960101
  3. HUMALOG [Suspect]
     Indication: DIABETES MELLITUS
     Dosage: 2/D
     Dates: start: 19960101
  4. ZOMETA [Concomitant]

REACTIONS (7)
  - ADRENAL NEOPLASM [None]
  - BLOOD GLUCOSE DECREASED [None]
  - BLOOD GLUCOSE INCREASED [None]
  - BLOOD PRESSURE INCREASED [None]
  - METASTASES TO ADRENALS [None]
  - NEUROPATHY PERIPHERAL [None]
  - PROSTATE CANCER [None]
